FAERS Safety Report 7069544-0 (Version None)
Quarter: 2010Q4

REPORT INFORMATION
  Report Type: 
  Country: None (occurrence: None)
  Receive Date: 20101028
  Receipt Date: 20100430
  Transmission Date: 20110411
  Serious: No
  Sender: FDA-Public Use
  Company Number: US-WYE-H13998610

PATIENT
  Age: 64 Year
  Sex: Male

DRUGS (11)
  1. PROTONIX [Suspect]
     Dosage: UNKNOWN
     Route: 065
  2. EZETIMIBE [Concomitant]
  3. NICOTINIC ACID [Concomitant]
  4. ISOSORBIDE DINITRATE [Concomitant]
  5. OXYCODONE HCL [Concomitant]
  6. ALPRAZOLAM [Concomitant]
  7. OXYBUTYNIN [Concomitant]
  8. CLOPIDOGREL BISULFATE [Concomitant]
  9. LEVOTHYROXINE [Concomitant]
  10. ATORVASTATIN CALCIUM [Concomitant]
  11. METOPROLOL [Concomitant]

REACTIONS (1)
  - DRUG EFFECT DECREASED [None]
